FAERS Safety Report 11942333 (Version 4)
Quarter: 2017Q3

REPORT INFORMATION
  Report Type: Report from Study
  Country: US (occurrence: US)
  Receive Date: 20160125
  Receipt Date: 20170808
  Transmission Date: 20171127
  Serious: Yes (Hospitalization)
  Sender: FDA-Public Use
  Company Number: US-ROCHE-1697012

PATIENT
  Age: 70 Year
  Sex: Female
  Weight: 55.7 kg

DRUGS (5)
  1. AMOXICILLIN. [Suspect]
     Active Substance: AMOXICILLIN
     Indication: PHARYNGITIS
     Route: 065
  2. CETUXIMAB. [Suspect]
     Active Substance: CETUXIMAB
     Indication: COLORECTAL CANCER METASTATIC
     Dosage: DOSE 22/DEC/2015, DAY 1 TO 28?LAST ADMINISTRED DATE 05/JAN/2016
     Route: 042
     Dates: start: 20151222, end: 20151222
  3. IRINOTECAN [Suspect]
     Active Substance: IRINOTECAN
     Indication: COLORECTAL CANCER METASTATIC
     Dosage: DOSE 22/DEC/2015, DAY 1 TO 28?LAST ADMINISTRED DATE 05/JAN/2016
     Route: 042
     Dates: start: 20151222, end: 20151222
  4. MIRALAX [Suspect]
     Active Substance: POLYETHYLENE GLYCOL 3350
     Indication: PHARYNGITIS
     Route: 065
  5. VEMURAFENIB. [Suspect]
     Active Substance: VEMURAFENIB
     Indication: ADENOCARCINOMA OF COLON
     Dosage: DAY 1 TO 28?LAST ADMINISTRED DATE 05/JAN/2016
     Route: 048
     Dates: start: 20151222

REACTIONS (8)
  - Nausea [Unknown]
  - Neutrophil count decreased [Recovered/Resolved]
  - Fatigue [Recovered/Resolved]
  - White blood cell count decreased [Recovered/Resolved]
  - Abdominal pain [Recovered/Resolved]
  - Clostridium test positive [Recovered/Resolved]
  - Dehydration [Unknown]
  - Diarrhoea [Recovered/Resolved]

NARRATIVE: CASE EVENT DATE: 20160113
